FAERS Safety Report 9999214 (Version 2)
Quarter: 2014Q1

REPORT INFORMATION
  Report Type: Spontaneous
  Country: US (occurrence: US)
  Receive Date: 20140312
  Receipt Date: 20140313
  Transmission Date: 20141002
  Serious: Yes (Other)
  Sender: FDA-Public Use
  Company Number: US-RB-063642-14

PATIENT
  Age: 60 Year
  Sex: Female

DRUGS (2)
  1. MUCINEX DM MAXIMUM STRENGTH [Suspect]
     Indication: COUGH
     Dosage: STARTED 1 TABLET EVERY 12 HOURS IN ??/JAN/2014
     Route: 048
  2. MUCINEX DM MAXIMUM STRENGTH [Suspect]
     Dosage: LAST USED 1 TABLET PER DAY ON 24-FEB-2014
     Route: 048
     Dates: end: 20140224

REACTIONS (2)
  - Blood pressure increased [Not Recovered/Not Resolved]
  - Incorrect drug administration duration [Recovered/Resolved]
